FAERS Safety Report 7346737-6 (Version None)
Quarter: 2011Q1

REPORT INFORMATION
  Report Type: 
  Country: None (occurrence: None)
  Receive Date: 20110311
  Receipt Date: 20110307
  Transmission Date: 20110831
  Serious: Yes (Other)
  Sender: FDA-Public Use
  Company Number: JP-BRISTOL-MYERS SQUIBB COMPANY-15593189

PATIENT
  Age: 5 Decade
  Sex: Female

DRUGS (2)
  1. ARIMIDEX [Concomitant]
     Indication: BREAST CANCER
     Dates: start: 20110201
  2. BARACLUDE [Suspect]

REACTIONS (1)
  - DEPRESSION [None]
